FAERS Safety Report 13960895 (Version 1)
Quarter: 2017Q3

REPORT INFORMATION
  Report Type: Spontaneous
  Country: GB (occurrence: GB)
  Receive Date: 20170912
  Receipt Date: 20170912
  Transmission Date: 20171128
  Serious: Yes (Hospitalization, Other)
  Sender: FDA-Public Use
  Company Number: GB-PFIZER INC-2017387939

PATIENT
  Age: 79 Year
  Sex: Male

DRUGS (23)
  1. TAZOCIN [Concomitant]
     Active Substance: PIPERACILLIN SODIUM\TAZOBACTAM SODIUM
     Dosage: UNK
     Dates: start: 20170814, end: 20170815
  2. FUROSEMIDE. [Concomitant]
     Active Substance: FUROSEMIDE
     Dosage: UNK
  3. NOREPINEPHRINE. [Concomitant]
     Active Substance: NOREPINEPHRINE
     Dosage: UNK
  4. GENTAMICIN. [Concomitant]
     Active Substance: GENTAMICIN
     Dosage: 3 DF, SINGLE (15TH, 20TH, 21ST)
     Dates: start: 20170815, end: 20170821
  5. HALOPERIDOL. [Concomitant]
     Active Substance: HALOPERIDOL
     Dosage: UNK
  6. LEVOFLOXACIN. [Concomitant]
     Active Substance: LEVOFLOXACIN
     Dosage: UNK
  7. SALBUTAMOL [Concomitant]
     Active Substance: ALBUTEROL
     Dosage: UNK
  8. TINZAPARIN SODIUM [Concomitant]
     Active Substance: TINZAPARIN SODIUM
     Dosage: UNK
  9. LINEZOLID. [Suspect]
     Active Substance: LINEZOLID
     Indication: ABDOMINAL SEPSIS
     Dosage: 600 MG, ONCE PER 12 HOURS
     Route: 042
     Dates: start: 20170815, end: 20170823
  10. BISOPROLOL [Concomitant]
     Active Substance: BISOPROLOL
     Dosage: UNK
  11. LOPERAMIDE [Concomitant]
     Active Substance: LOPERAMIDE
     Dosage: UNK
  12. RANITIDINE. [Concomitant]
     Active Substance: RANITIDINE
     Dosage: UNK
  13. MAGNASPARTATE [Concomitant]
     Dosage: UNK
  14. TRAMADOL. [Concomitant]
     Active Substance: TRAMADOL
     Dosage: UNK
  15. FENTANYL. [Concomitant]
     Active Substance: FENTANYL
     Dosage: UNK
  16. MEROPENEM. [Concomitant]
     Active Substance: MEROPENEM
     Dosage: UNK
     Dates: start: 20170816, end: 20170822
  17. ALFENTANIL. [Concomitant]
     Active Substance: ALFENTANIL
     Dosage: UNK
  18. METRONIDAZOLE. [Concomitant]
     Active Substance: METRONIDAZOLE
     Dosage: UNK
  19. MORPHINE [Concomitant]
     Active Substance: MORPHINE
     Dosage: UNK
  20. PARACETAMOL [Concomitant]
     Active Substance: ACETAMINOPHEN
     Dosage: UNK
  21. AMIODARONE [Concomitant]
     Active Substance: AMIODARONE
     Dosage: UNK
  22. NALOXONE [Concomitant]
     Active Substance: NALOXONE
     Dosage: UNK
  23. PROPOFOL. [Concomitant]
     Active Substance: PROPOFOL
     Dosage: UNK

REACTIONS (3)
  - Delirium [Unknown]
  - Somnolence [Unknown]
  - Hypoglycaemia [Recovered/Resolved]

NARRATIVE: CASE EVENT DATE: 20170815
